FAERS Safety Report 10032900 (Version 2)
Quarter: 2014Q2

REPORT INFORMATION
  Report Type: Spontaneous
  Country: US (occurrence: US)
  Receive Date: 20140324
  Receipt Date: 20140425
  Transmission Date: 20141212
  Serious: Yes (Other)
  Sender: FDA-Public Use
  Company Number: 2014SP000887

PATIENT
  Age: 14 Year
  Sex: Male

DRUGS (1)
  1. ZETONNA [Suspect]
     Indication: SEASONAL ALLERGY
     Route: 045
     Dates: start: 2012

REACTIONS (1)
  - Glaucoma [Not Recovered/Not Resolved]
